FAERS Safety Report 5333912-5 (Version None)
Quarter: 2007Q2

REPORT INFORMATION
  Report Type: 
  Country: None (occurrence: None)
  Receive Date: 20070524
  Receipt Date: 20070515
  Transmission Date: 20071010
  Serious: Yes (Hospitalization, Other)
  Sender: FDA-Public Use
  Company Number: US-PFIZER INC-2006122279

PATIENT
  Sex: Male

DRUGS (2)
  1. CELEBREX [Suspect]
     Indication: ARTHRITIS
     Dates: start: 19990818, end: 20000501
  2. VIOXX [Suspect]
     Dates: start: 19990101

REACTIONS (2)
  - CARDIOVASCULAR DISORDER [None]
  - DEPRESSION [None]
